FAERS Safety Report 9235810 (Version 1)
Quarter: 2013Q2

REPORT INFORMATION
  Report Type: Report from Study
  Country: MX (occurrence: MX)
  Receive Date: 20130417
  Receipt Date: 20130417
  Transmission Date: 20140414
  Serious: Yes (Other)
  Sender: FDA-Public Use
  Company Number: PHHY2013MX037004

PATIENT
  Age: 69 Year
  Sex: Female

DRUGS (1)
  1. EXFORGE HCT [Suspect]
     Indication: HYPERTENSION
     Dosage: 1 DF (160 MG VALS/5MG AMLO/12.5MG HCTZ), DAILY
     Route: 048
     Dates: start: 201106

REACTIONS (2)
  - Bone fissure [Recovering/Resolving]
  - Fall [Recovering/Resolving]
